FAERS Safety Report 11571118 (Version 1)
Quarter: 2015Q3

REPORT INFORMATION
  Report Type: Report from Study
  Country: US (occurrence: US)
  Receive Date: 20150929
  Receipt Date: 20150929
  Transmission Date: 20151125
  Serious: No
  Sender: FDA-Public Use
  Company Number: US-GLAXOSMITHKLINE-US2015GSK123837

PATIENT

DRUGS (2)
  1. HERCEPTIN [Concomitant]
     Active Substance: TRASTUZUMAB
  2. TYKERB [Suspect]
     Active Substance: LAPATINIB DITOSYLATE
     Indication: METASTATIC NEOPLASM

REACTIONS (1)
  - Off label use [Unknown]
